FAERS Safety Report 9686403 (Version 1)
Quarter: 2013Q4

REPORT INFORMATION
  Report Type: Spontaneous
  Country: CN (occurrence: None)
  Receive Date: 20131108
  Receipt Date: 20131108
  Transmission Date: 20140711
  Serious: Yes (Death)
  Sender: FDA-Public Use
  Company Number: CC400198704

PATIENT
  Age: 64 Year
  Sex: Male

DRUGS (2)
  1. CEFUROXIME [Suspect]
     Indication: COUGH
  2. CEFUROXIME [Suspect]
     Indication: PRODUCTIVE COUGH

REACTIONS (11)
  - Flushing [None]
  - Hyperhidrosis [None]
  - Asthenia [None]
  - Heart rate increased [None]
  - Dyspnoea [None]
  - Loss of consciousness [None]
  - Alcohol intolerance [None]
  - Coronary artery stenosis [None]
  - Emphysema [None]
  - Toxicologic test abnormal [None]
  - Blood ethanol increased [None]
